FAERS Safety Report 19031022 (Version 1)
Quarter: 2021Q1

REPORT INFORMATION
  Report Type: Spontaneous
  Country: US (occurrence: US)
  Receive Date: 20210319
  Receipt Date: 20210319
  Transmission Date: 20210420
  Serious: No
  Sender: FDA-Public Use
  Company Number: None

PATIENT
  Age: 75 Year
  Sex: Female
  Weight: 67.95 kg

DRUGS (4)
  1. REMICADE [Suspect]
     Active Substance: INFLIXIMAB
     Dosage: ?          OTHER FREQUENCY:Q2WK X3 THEN Q8WK;?
     Route: 042
  2. REMICADE [Concomitant]
     Active Substance: INFLIXIMAB
  3. IMURAN [Concomitant]
     Active Substance: AZATHIOPRINE
  4. PREDNISONE. [Concomitant]
     Active Substance: PREDNISONE

REACTIONS (10)
  - Migraine [None]
  - Angioedema [None]
  - Visual impairment [None]
  - Infusion related reaction [None]
  - Butterfly rash [None]
  - Fatigue [None]
  - Eye swelling [None]
  - Blood pressure increased [None]
  - Vision blurred [None]
  - Back pain [None]

NARRATIVE: CASE EVENT DATE: 20210202
